FAERS Safety Report 11507594 (Version 1)
Quarter: 2015Q3

REPORT INFORMATION
  Report Type: Spontaneous
  Country: BR (occurrence: BR)
  Receive Date: 20150915
  Receipt Date: 20150915
  Transmission Date: 20151125
  Serious: Yes (Hospitalization, Other)
  Sender: FDA-Public Use
  Company Number: BR-BAXALTA-2015BLT001711

PATIENT
  Age: 18 Year
  Sex: Male

DRUGS (2)
  1. HEMOVIIIR [Suspect]
     Active Substance: ANTIHEMOPHILIC FACTOR, HUMAN RECOMBINANT
     Indication: HAEMORRHAGE PROPHYLAXIS
     Dosage: UNK, 3X A WEEK
     Route: 065
  2. HEMOVIIIR [Suspect]
     Active Substance: ANTIHEMOPHILIC FACTOR, HUMAN RECOMBINANT
     Indication: FACTOR VIII DEFICIENCY

REACTIONS (3)
  - Dizziness [Unknown]
  - Peptic ulcer perforation [Unknown]
  - Anaemia [Unknown]

NARRATIVE: CASE EVENT DATE: 20150831
